FAERS Safety Report 7496138-5 (Version None)
Quarter: 2011Q2

REPORT INFORMATION
  Report Type: 
  Country: None (occurrence: None)
  Receive Date: 20110523
  Receipt Date: 20110509
  Transmission Date: 20111010
  Serious: Yes (Hospitalization, Other)
  Sender: FDA-Public Use
  Company Number: PHHY2011PL15506

PATIENT
  Sex: Female
  Weight: 62 kg

DRUGS (2)
  1. EXTAVIA [Suspect]
     Indication: MULTIPLE SCLEROSIS
     Dosage: 250 UG/ML, UNK
     Route: 058
     Dates: start: 20091115, end: 20091230
  2. BETAFERON [Concomitant]

REACTIONS (4)
  - SYNCOPE [None]
  - VERTIGO [None]
  - INFLUENZA LIKE ILLNESS [None]
  - SKIN DISORDER [None]
